FAERS Safety Report 8530922-1 (Version None)
Quarter: 2012Q3

REPORT INFORMATION
  Report Type: 
  Country: None (occurrence: None)
  Receive Date: 20120723
  Receipt Date: 20120718
  Transmission Date: 20120928
  Serious: Yes (Hospitalization)
  Sender: FDA-Public Use
  Company Number: GB-ROCHE-1089931

PATIENT
  Sex: Male
  Weight: 68.8 kg

DRUGS (5)
  1. LANSOPRAZOLE [Concomitant]
     Route: 048
     Dates: start: 20111026
  2. XELODA [Suspect]
     Indication: GASTRIC CANCER
     Dosage: DATE OF RECENT DRUG TAKEN:05/JAN/2012, MOST RECENT DOSE: 2300 MG
     Route: 048
     Dates: start: 20111220
  3. EPIRUBICIN HYDROCHLORIDE [Suspect]
     Indication: GASTRIC CANCER
     Dosage: DATE OF RECENT DRUG TAKEN:20/DEC/2011
     Route: 042
     Dates: start: 20111220
  4. CISPLATIN [Suspect]
     Indication: GASTRIC CANCER
     Dosage: DATE OF RECENT DRUG TAKEN:20/DEC/2011
     Route: 042
     Dates: start: 20111220
  5. AVASTIN [Suspect]
     Indication: GASTRIC CANCER
     Dosage: DATE OF RECENT DRUG TAKEN:20/DEC/2012
     Route: 042
     Dates: start: 20111220

REACTIONS (1)
  - ANASTOMOTIC LEAK [None]
